FAERS Safety Report 7768457-6 (Version None)
Quarter: 2011Q3

REPORT INFORMATION
  Report Type: 
  Country: None (occurrence: None)
  Receive Date: 20110922
  Receipt Date: 20110225
  Transmission Date: 20111222
  Serious: No
  Sender: FDA-Public Use
  Company Number: US-ASTRAZENECA-2011SE10838

PATIENT
  Age: 29 Year
  Sex: Male
  Weight: 79.4 kg

DRUGS (1)
  1. SEROQUEL [Suspect]
     Indication: SLEEP DISORDER
     Route: 048
     Dates: start: 20110201

REACTIONS (6)
  - SOMNOLENCE [None]
  - TREMOR [None]
  - INSOMNIA [None]
  - DIZZINESS [None]
  - FEELING DRUNK [None]
  - DRUG INEFFECTIVE FOR UNAPPROVED INDICATION [None]
